FAERS Safety Report 4593997-0 (Version None)
Quarter: 2005Q1

REPORT INFORMATION
  Report Type: 
  Country: None (occurrence: None)
  Receive Date: 20050222
  Receipt Date: 20050215
  Transmission Date: 20050727
  Serious: Yes (Life-Threatening, Hospitalization)
  Sender: FDA-Public Use
  Company Number: FRWYE319206JAN05

PATIENT
  Age: 36 Year
  Sex: Male

DRUGS (4)
  1. EFFEXOR XR [Suspect]
     Indication: DEPRESSION
     Dosage: ORAL
     Route: 048
     Dates: start: 20041006, end: 20041008
  2. CLOPIXOL (ZUCLOPENTHIXOL DECANOATE) [Concomitant]
  3. LORAZEPAM [Concomitant]
  4. PARKINANE LP (TRIHEXYPHENIDYL) [Concomitant]

REACTIONS (6)
  - AGGRESSION [None]
  - CEREBRAL VENTRICLE DILATATION [None]
  - HALLUCINATION, AUDITORY [None]
  - PERSECUTORY DELUSION [None]
  - SUICIDE ATTEMPT [None]
  - TACHYCARDIA [None]
